FAERS Safety Report 5062253-9 (Version None)
Quarter: 2006Q3

REPORT INFORMATION
  Report Type: 
  Country: None (occurrence: None)
  Receive Date: 20060726
  Receipt Date: 20060719
  Transmission Date: 20061208
  Serious: Yes (Hospitalization)
  Sender: FDA-Public Use
  Company Number: FR-BRISTOL-MYERS SQUIBB COMPANY-13448139

PATIENT
  Age: 73 Year
  Sex: Female

DRUGS (2)
  1. SINEMET LP TABS 50 MG/200 MG [Suspect]
     Indication: PARKINSON'S DISEASE
     Route: 048
  2. SERESTA [Suspect]
     Indication: PARKINSON'S DISEASE

REACTIONS (7)
  - CONVULSION [None]
  - DRUG WITHDRAWAL SYNDROME [None]
  - DYSARTHRIA [None]
  - DYSKINESIA [None]
  - DYSPHAGIA [None]
  - INSOMNIA [None]
  - TREMOR [None]
